FAERS Safety Report 8617685-6 (Version None)
Quarter: 2012Q3

REPORT INFORMATION
  Report Type: 
  Country: None (occurrence: None)
  Receive Date: 20120824
  Receipt Date: 20120127
  Transmission Date: 20120928
  Serious: No
  Sender: FDA-Public Use
  Company Number: US-ASTRAZENECA-2011SE78583

PATIENT
  Sex: Male

DRUGS (3)
  1. SYMBICORT [Suspect]
     Dosage: 160/4.5 UG TWO PUFFS TWO TIMES A DAY
     Route: 055
  2. SYMBICORT [Suspect]
     Dosage: 160/4.5 UG TWO PUFFS TWO TIMES A DAY
     Route: 055
     Dates: start: 20111212
  3. ASMANEX TWISTHALER [Suspect]
     Route: 065

REACTIONS (1)
  - MALAISE [None]
